FAERS Safety Report 8018436-9 (Version None)
Quarter: 2012Q1

REPORT INFORMATION
  Report Type: 
  Country: None (occurrence: None)
  Receive Date: 20120103
  Receipt Date: 20111220
  Transmission Date: 20120608
  Serious: Yes (Death)
  Sender: FDA-Public Use
  Company Number: FR-SANOFI-AVENTIS-2011SA083215

PATIENT
  Age: 88 Year
  Sex: Male

DRUGS (7)
  1. NEXIUM [Concomitant]
     Route: 048
     Dates: start: 20110101
  2. ESCITALOPRAM OXALATE [Suspect]
     Route: 048
     Dates: start: 20110101, end: 20110428
  3. ASPIRIN [Concomitant]
     Route: 048
     Dates: start: 20110101
  4. LEVOTHYROXINE SODIUM [Concomitant]
     Route: 048
     Dates: start: 20110101
  5. LASIX [Suspect]
     Route: 048
     Dates: start: 20110101
  6. PERINDOPRIL [Concomitant]
     Route: 048
     Dates: start: 20110101
  7. POTASSIUM CHLORIDE [Concomitant]
     Route: 048
     Dates: start: 20110101

REACTIONS (2)
  - HYPONATRAEMIA [None]
  - CONVULSION [None]
